FAERS Safety Report 24894435 (Version 1)
Quarter: 2025Q1

REPORT INFORMATION
  Report Type: Spontaneous
  Country: JP (occurrence: JP)
  Receive Date: 20250128
  Receipt Date: 20250128
  Transmission Date: 20250409
  Serious: Yes (Hospitalization)
  Sender: BAYER HEALTHCARE PHARMACEUTICALS INC.
  Company Number: JP-BAYER-2025A012443

PATIENT

DRUGS (2)
  1. VITRAKVI [Suspect]
     Active Substance: LAROTRECTINIB
     Indication: NTRK gene fusion positive
  2. VITRAKVI [Suspect]
     Active Substance: LAROTRECTINIB
     Indication: Papillary thyroid cancer

REACTIONS (2)
  - Papillary thyroid cancer [Not Recovered/Not Resolved]
  - Metastases to bone [None]
